FAERS Safety Report 9508492 (Version 1)
Quarter: 2013Q1

REPORT INFORMATION
  Report Type: Spontaneous
  Country: US (occurrence: None)
  Receive Date: 20130305
  Receipt Date: 20130305
  Transmission Date: 20140127
  Serious: Yes (Other)
  Sender: FDA-Public Use
  Company Number: 163-21880-12112279

PATIENT
  Age: 82 Year
  Sex: Male

DRUGS (3)
  1. REVLIMID (LENALIDOMIDE) (CAPSULES) [Suspect]
     Indication: PLASMA CELL MYELOMA
     Dosage: CAPSULE, 25 MG, 21 IN 21 D, PO
     Dates: start: 20120506
  2. ALBUTEROL SULFATE (SALBUTAMOL SULFATE) [Concomitant]
  3. NEXIUM [Concomitant]

REACTIONS (1)
  - Gastric disorder [None]
